FAERS Safety Report 10459312 (Version 2)
Quarter: 2014Q3

REPORT INFORMATION
  Report Type: Spontaneous
  Country: FR (occurrence: FR)
  Receive Date: 20140917
  Receipt Date: 20140917
  Transmission Date: 20150326
  Serious: Yes (Hospitalization, Other)
  Sender: FDA-Public Use
  Company Number: FR-PFIZER INC-2014249706

PATIENT
  Age: 90 Year
  Sex: Female

DRUGS (7)
  1. FUROSEMIDE. [Suspect]
     Active Substance: FUROSEMIDE
     Indication: CARDIAC REHABILITATION THERAPY
     Dosage: 20 MG
  2. RAMIPRIL. [Suspect]
     Active Substance: RAMIPRIL
     Indication: CARDIAC REHABILITATION THERAPY
     Dosage: 5 MG
  3. CLOPIDOGREL [Suspect]
     Active Substance: CLOPIDOGREL BISULFATE
     Indication: CARDIOVASCULAR DISORDER
     Dosage: 75MG
  4. EPLERENONE. [Suspect]
     Active Substance: EPLERENONE
     Indication: CARDIAC REHABILITATION THERAPY
     Dosage: 25 MG
  5. BISOPROLOL FUMARATE. [Suspect]
     Active Substance: BISOPROLOL FUMARATE
     Indication: CARDIAC REHABILITATION THERAPY
     Dosage: 5 MG
  6. ROSUVASTATIN CALCIUM [Suspect]
     Active Substance: ROSUVASTATIN CALCIUM
     Indication: CARDIAC REHABILITATION THERAPY
     Dosage: 5 MG
  7. ASPIRINE [Suspect]
     Active Substance: ASPIRIN
     Indication: CARDIAC REHABILITATION THERAPY
     Dosage: 75 MG

REACTIONS (3)
  - Drug ineffective [Unknown]
  - Cardiac failure chronic [Recovered/Resolved]
  - Dyspnoea at rest [Recovered/Resolved]
